FAERS Safety Report 9703394 (Version 1)
Quarter: 2013Q4

REPORT INFORMATION
  Report Type: Report from Study
  Country: AR (occurrence: AR)
  Receive Date: 20131122
  Receipt Date: 20131122
  Transmission Date: 20140711
  Serious: Yes (Death, Hospitalization)
  Sender: FDA-Public Use
  Company Number: PHHY2013AR133695

PATIENT
  Sex: Female

DRUGS (3)
  1. DIOVAN [Suspect]
     Indication: CARDIAC DISORDER
     Dosage: 160 MG, QD
     Route: 048
     Dates: start: 2010
  2. INSULIN [Concomitant]
     Indication: DIABETES MELLITUS
     Dosage: 1 DF, QD
     Route: 023
  3. MIDAX [Concomitant]
     Dosage: 1 DF, QD
     Route: 048

REACTIONS (6)
  - Cardiac disorder [Fatal]
  - Hypoglycaemia [Fatal]
  - Dysphagia [Fatal]
  - Choking [Fatal]
  - Coronary artery disease [Unknown]
  - Constipation [Unknown]
